FAERS Safety Report 17557781 (Version 2)
Quarter: 2020Q2

REPORT INFORMATION
  Report Type: Spontaneous
  Country: JP (occurrence: JP)
  Receive Date: 20200318
  Receipt Date: 20200521
  Transmission Date: 20200713
  Serious: Yes (Hospitalization)
  Sender: FDA-Public Use
  Company Number: JP-BAYER-2020-044534

PATIENT
  Age: 71 Year
  Sex: Female
  Weight: 35.3 kg

DRUGS (7)
  1. UREA. [Concomitant]
     Active Substance: UREA
     Dosage: 1~2TIMES OND DAY
     Dates: start: 20200108
  2. STIVARGA [Suspect]
     Active Substance: REGORAFENIB
     Indication: COLON CANCER
     Dosage: DAILY DOSE 160 MG
     Dates: start: 20200116, end: 20200119
  3. STIVARGA [Suspect]
     Active Substance: REGORAFENIB
     Indication: COLON CANCER
     Dosage: UNK
     Dates: end: 20200108
  4. STIVARGA [Suspect]
     Active Substance: REGORAFENIB
     Indication: COLON CANCER
     Dosage: DAILY DOSE 120MG
     Dates: start: 20200109, end: 20200115
  5. SPEEL [Concomitant]
     Dosage: UNK
     Dates: start: 20200120
  6. LEVOFLOXACIN OD [Suspect]
     Active Substance: LEVOFLOXACIN
     Indication: PYREXIA
     Dosage: 500 MG, QD
     Dates: start: 20200120, end: 20200120
  7. MAGNESIUM OXIDE. [Concomitant]
     Active Substance: MAGNESIUM OXIDE
     Dosage: DAILY DOSE 1980 MG

REACTIONS (6)
  - Eye pruritus [Recovered/Resolved]
  - Erythema [Recovered/Resolved]
  - Dyspnoea [Recovered/Resolved]
  - Abdominal pain [Recovered/Resolved]
  - Drug eruption [Recovered/Resolved]
  - Pyrexia [Recovered/Resolved]

NARRATIVE: CASE EVENT DATE: 20200115
